FAERS Safety Report 8814365 (Version 1)
Quarter: 2012Q4

REPORT INFORMATION
  Report Type: 
  Country: MT (occurrence: MT)
  Receive Date: 20120928
  Receipt Date: 20120928
  Transmission Date: 20130627
  Serious: Yes (Other)
  Sender: FDA-Public Use
  Company Number: PHHY2012MT072094

PATIENT
  Age: 80 Year
  Sex: Male

DRUGS (8)
  1. FLUVASTATIN [Suspect]
     Dates: start: 200909
  2. SIMVASTATIN [Suspect]
     Dates: start: 200906
  3. INSULIN [Concomitant]
  4. ACETYLSALICYLIC ACID [Concomitant]
  5. ISOSORBIDE MONONITRATE [Concomitant]
  6. ATENOLOL [Concomitant]
  7. ASCORBIC ACID [Concomitant]
  8. OMEPRAZOLE [Concomitant]

REACTIONS (1)
  - Cough [Unknown]
